FAERS Safety Report 22177608 (Version 1)
Quarter: 2023Q2

REPORT INFORMATION
  Report Type: Spontaneous
  Country: CN (occurrence: CN)
  Receive Date: 20230405
  Receipt Date: 20230405
  Transmission Date: 20230722
  Serious: Yes (Other)
  Sender: FDA-Public Use
  Company Number: None

PATIENT
  Age: 42 Year
  Sex: Female
  Weight: 50 kg

DRUGS (7)
  1. CYCLOPHOSPHAMIDE [Suspect]
     Active Substance: CYCLOPHOSPHAMIDE
     Indication: Breast cancer female
     Dosage: 0.9 G, QD, DILUTED WITH 50 ML OF 0.9 % SODIUM CHLORIDE
     Route: 041
     Dates: start: 20230307, end: 20230307
  2. CYCLOPHOSPHAMIDE [Suspect]
     Active Substance: CYCLOPHOSPHAMIDE
     Indication: Chemotherapy
  3. SODIUM CHLORIDE [Suspect]
     Active Substance: SODIUM CHLORIDE
     Indication: Medication dilution
     Dosage: 0.9%, 50 ML, QD, USED TO DILUTE 0.9 G CYCLOPHOSPHAMIDE (DOSAGE FORM: INJECTION)
     Route: 041
     Dates: start: 20230307, end: 20230307
  4. SODIUM CHLORIDE [Suspect]
     Active Substance: SODIUM CHLORIDE
     Dosage: 0.9%, 100 ML, QD, USED TO DILUTE 60 MG EPIRUBICIN HYDROCHLORIDE (DOSAGE FORM: INJECTION)
     Route: 041
     Dates: start: 20230307, end: 20230307
  5. SODIUM CHLORIDE [Suspect]
     Active Substance: SODIUM CHLORIDE
     Dosage: 0.9%, 100 ML, QD, USED TO DILUTE 70 MG EPIRUBICIN HYDROCHLORIDE (DOSAGE FORM: INJECTION)
     Route: 041
     Dates: start: 20230308, end: 20230308
  6. EPIRUBICIN HYDROCHLORIDE [Suspect]
     Active Substance: EPIRUBICIN HYDROCHLORIDE
     Indication: Breast cancer female
     Dosage: 60 MG, QD, DILUTED WITH 100 ML OF 0.9 % SODIUM CHLORIDE
     Route: 041
     Dates: start: 20230307, end: 20230307
  7. EPIRUBICIN HYDROCHLORIDE [Suspect]
     Active Substance: EPIRUBICIN HYDROCHLORIDE
     Indication: Chemotherapy
     Dosage: 70 MG, QD, DILUTED WITH 100 ML OF 0.9 % SODIUM CHLORIDE
     Route: 041
     Dates: start: 20230308, end: 20230308

REACTIONS (1)
  - White blood cell count decreased [Recovered/Resolved]

NARRATIVE: CASE EVENT DATE: 20230316
